FAERS Safety Report 18021137 (Version 2)
Quarter: 2020Q3

REPORT INFORMATION
  Report Type: Report from Study
  Country: AR (occurrence: AR)
  Receive Date: 20200714
  Receipt Date: 20200729
  Transmission Date: 20201103
  Serious: Yes (Hospitalization)
  Sender: FDA-Public Use
  Company Number: NVSC2020AR195754

PATIENT
  Age: 64 Year
  Sex: Male

DRUGS (13)
  1. HUMALOG [Concomitant]
     Active Substance: INSULIN LISPRO
     Indication: INFARCTION
     Dosage: BEFORE THE INTAKE OF EVERY MEAL IF THE GLUCOSE IN BLOOD LEVEL WAS CLOSE TO 120
     Route: 065
  2. METFORMIN [Suspect]
     Active Substance: METFORMIN HYDROCHLORIDE
     Indication: TYPE 2 DIABETES MELLITUS
     Dosage: 2 DF, QD, (2 OF 1000 MG), IN THE MORNING
     Route: 065
  3. HUMULIN N [Concomitant]
     Active Substance: INSULIN HUMAN
     Indication: INFARCTION
     Dosage: UNK, BID, (MORNING AND IN THE NIGHT)
     Route: 065
  4. ROSUVASTATIN. [Concomitant]
     Active Substance: ROSUVASTATIN
     Indication: PRODUCT USED FOR UNKNOWN INDICATION
     Dosage: 1 DF, QD, (1 OF 20 MG), IN NIGHT
     Route: 065
  5. ALDACTONE [Concomitant]
     Active Substance: SPIRONOLACTONE
     Indication: PRODUCT USED FOR UNKNOWN INDICATION
     Dosage: 1 DF, QD,(1 OF 50 MG)
     Route: 065
  6. ENTRESTO [Suspect]
     Active Substance: SACUBITRIL\VALSARTAN
     Indication: CARDIAC FAILURE
     Dosage: 2 DF, QD (2 OF 100)
     Route: 065
     Dates: start: 202006, end: 202006
  7. CORBIS [Concomitant]
     Indication: PRODUCT USED FOR UNKNOWN INDICATION
     Dosage: 1 DF, QD, (1 OF 10 MG)
     Route: 065
  8. FUROSEMIDE. [Concomitant]
     Active Substance: FUROSEMIDE
     Indication: ABNORMAL WEIGHT GAIN
     Dosage: 1 DF, QD, (1 OF 40 MG)
     Route: 065
     Dates: start: 202006, end: 20200703
  9. DIOVAN [Suspect]
     Active Substance: VALSARTAN
     Indication: BLOOD PRESSURE MEASUREMENT
     Dosage: 1 DF, QD (1 OF 320/25), STARTED APPROXIMATELY 4 OR 5 YEARS AGO
     Route: 065
     Dates: end: 202006
  10. ENTRESTO [Suspect]
     Active Substance: SACUBITRIL\VALSARTAN
     Dosage: 2 DF, QD, (2 OF 200)
     Route: 065
     Dates: start: 202007
  11. ASPIRIN. [Concomitant]
     Active Substance: ASPIRIN
     Indication: PRODUCT USED FOR UNKNOWN INDICATION
     Dosage: 1 DF, QD, (1 OF 100 MG)
     Route: 065
  12. DIOVAN [Suspect]
     Active Substance: VALSARTAN
     Indication: HYPERTENSION
  13. LERCADIP [Concomitant]
     Active Substance: LERCANIDIPINE HYDROCHLORIDE
     Indication: PRODUCT USED FOR UNKNOWN INDICATION
     Dosage: 1 DF, QD, (1 OF 20 MG)
     Route: 065
     Dates: end: 20200703

REACTIONS (8)
  - Dyspnoea [Recovering/Resolving]
  - Cardiac failure [Recovering/Resolving]
  - Back pain [Unknown]
  - Choking [Recovering/Resolving]
  - Pain in extremity [Recovered/Resolved]
  - Cough [Unknown]
  - Wound complication [Recovered/Resolved]
  - Pleural effusion [Unknown]

NARRATIVE: CASE EVENT DATE: 202005
